FAERS Safety Report 24892636 (Version 1)
Quarter: 2025Q1

REPORT INFORMATION
  Report Type: Spontaneous
  Country: CA (occurrence: CA)
  Receive Date: 20250128
  Receipt Date: 20250128
  Transmission Date: 20250409
  Serious: Yes (Hospitalization, Other)
  Sender: CELLTRION
  Company Number: CA-CELLTRION INC.-2025CA001813

PATIENT

DRUGS (3)
  1. BEVACIZUMAB [Suspect]
     Active Substance: BEVACIZUMAB
     Indication: Hepatic cancer
     Dosage: 450 MILLIGRAM 1 EVERY 2 WEEKS
     Route: 051
  2. BEVACIZUMAB [Suspect]
     Active Substance: BEVACIZUMAB
     Indication: Colon cancer
     Dosage: 450 MILLIGRAM 1 EVERY 2 WEEKS
     Route: 051
  3. BEVACIZUMAB [Suspect]
     Active Substance: BEVACIZUMAB
     Dosage: 450 MILLIGRAM 1 EVERY 2 WEEKS
     Route: 051

REACTIONS (3)
  - Platelet count decreased [Unknown]
  - Hospitalisation [Unknown]
  - Intentional product use issue [Unknown]
